FAERS Safety Report 25911728 (Version 1)
Quarter: 2025Q4

REPORT INFORMATION
  Report Type: Spontaneous
  Country: US (occurrence: US)
  Receive Date: 20251013
  Receipt Date: 20251013
  Transmission Date: 20260118
  Serious: Yes (Hospitalization, Other)
  Sender: BIOCON
  Company Number: US-BIOCON-BCN-2025-000307

PATIENT
  Age: 68 Year
  Sex: Male

DRUGS (4)
  1. SIMVASTATIN [Suspect]
     Active Substance: SIMVASTATIN
     Indication: Lipid management
  2. SIMVASTATIN [Suspect]
     Active Substance: SIMVASTATIN
     Dosage: PREVIOUS SIMVASTATIN PRESCRIPTION (20 MG) AND THE NEWLY PRESCRIBED DOSE (40 MG) SIMULTANEOUSLY. APPR
  3. SIMVASTATIN [Suspect]
     Active Substance: SIMVASTATIN
     Dosage: APPROXIMATELY 2 YEARS PRIOR TO OUTPATIENT ENCOUNTER
  4. LISINOPRIL [Suspect]
     Active Substance: LISINOPRIL
     Indication: Product used for unknown indication
     Dosage: APPROXIMATELY 2 YEARS PRIOR TO OUTPATIENT ENCOUNTER

REACTIONS (3)
  - Angioedema [Recovered/Resolved]
  - Drug interaction [Recovered/Resolved]
  - Increased dose administered [Unknown]
